FAERS Safety Report 11385953 (Version 3)
Quarter: 2015Q3

REPORT INFORMATION
  Report Type: Spontaneous
  Country: IT (occurrence: IT)
  Receive Date: 20150817
  Receipt Date: 20150825
  Transmission Date: 20151125
  Serious: Yes (Death, Hospitalization)
  Sender: FDA-Public Use
  Company Number: IT-ROCHE-1621456

PATIENT
  Age: 74 Year
  Sex: Female

DRUGS (9)
  1. COPEGUS [Suspect]
     Active Substance: RIBAVIRIN
     Indication: HEPATITIS C
     Route: 048
     Dates: start: 20150616, end: 20150707
  2. CANRENONE [Concomitant]
     Active Substance: CANRENONE
     Route: 065
  3. ALLOPURINOL. [Concomitant]
     Active Substance: ALLOPURINOL
     Route: 048
  4. HUMAN ALBUMIN [Concomitant]
     Active Substance: ALBUMIN (HUMAN)
     Route: 065
  5. SOLU-MEDROL [Concomitant]
     Active Substance: METHYLPREDNISOLONE SODIUM SUCCINATE
     Dosage: 40 MG/ML-1 X 40 MG/ML DUAL-CHAMBER VIAL
     Route: 065
  6. PANTOPRAZOLE [Concomitant]
     Active Substance: PANTOPRAZOLE SODIUM
     Route: 065
  7. LASIX [Concomitant]
     Active Substance: FUROSEMIDE
     Dosage: 20 MG / 2 ML SOLUTION FOR INJECTION 5 X 2 ML VIAL
     Route: 042
  8. SOVALDI [Suspect]
     Active Substance: SOFOSBUVIR
     Indication: CHRONIC HEPATITIS C
     Dosage: 400 MG-FILM-COATED TABLET-BOTTLE (HDPE)-28 TABLETS
     Route: 048
     Dates: start: 20150616, end: 20150710
  9. DAKLINZA [Suspect]
     Active Substance: DACLATASVIR
     Indication: CHRONIC HEPATITIS C
     Dosage: 60 MG -BLISTER PACK (PVC/PCTFE/AL) - 28 TABLETS
     Route: 048
     Dates: start: 20150616, end: 20150710

REACTIONS (5)
  - Urinary tract infection [Fatal]
  - Ascites [Fatal]
  - Sepsis [Fatal]
  - Amnesia [Fatal]
  - Diarrhoea [Fatal]

NARRATIVE: CASE EVENT DATE: 20150626
